FAERS Safety Report 11749198 (Version 2)
Quarter: 2016Q1

REPORT INFORMATION
  Report Type: Report from Study
  Country: US (occurrence: US)
  Receive Date: 20151118
  Receipt Date: 20160104
  Transmission Date: 20160525
  Serious: Yes (Death)
  Sender: FDA-Public Use
  Company Number: US-AMGEN-USASL2015121161

PATIENT
  Age: 83 Year
  Sex: Male
  Weight: 61.22 kg

DRUGS (1)
  1. PROCRIT [Suspect]
     Active Substance: ERYTHROPOIETIN
     Indication: MYELODYSPLASTIC SYNDROME
     Dosage: 10,000 TO 60,000 UNITS, QWK
     Route: 058
     Dates: start: 201310, end: 201509

REACTIONS (3)
  - Off label use [Unknown]
  - Unevaluable event [Unknown]
  - Myelodysplastic syndrome [Fatal]
